FAERS Safety Report 8862682 (Version 2)
Quarter: 2013Q1

REPORT INFORMATION
  Report Type: Spontaneous
  Country: US (occurrence: US)
  Receive Date: 20121026
  Receipt Date: 20130305
  Transmission Date: 20140127
  Serious: No
  Sender: FDA-Public Use
  Company Number: US-PFIZER INC-2012264771

PATIENT
  Age: 76 Year
  Sex: Female
  Weight: 74 kg

DRUGS (5)
  1. DOXYCYCLINE HYCLATE [Suspect]
     Indication: URINARY TRACT INFECTION
     Dosage: 100 MG IN DSW 100 ML IVPB
     Route: 042
     Dates: start: 20121019, end: 20121021
  2. DOXYCYCLINE HYCLATE [Suspect]
     Indication: BACTERIAL INFECTION
  3. LOVENOX [Concomitant]
     Indication: THROMBOSIS PROPHYLAXIS
     Dosage: 40 MG, 1X/DAY
     Route: 058
     Dates: start: 20121017, end: 20121023
  4. INSULIN ASPART [Concomitant]
     Indication: HYPERGLYCAEMIA
     Dosage: 0-12 UNITS TID BEFORE MEALS
     Dates: start: 20121020, end: 20121023
  5. INSULIN GLARGINE [Concomitant]
     Indication: HYPERGLYCAEMIA
     Dosage: 40-55 UNITS NIGHTLY
     Dates: start: 20121020, end: 20121023

REACTIONS (7)
  - Injection site erythema [Recovered/Resolved]
  - Injection site discolouration [Recovered/Resolved]
  - Injection site irritation [Recovered/Resolved]
  - Extravasation [Recovered/Resolved]
  - Oedema [Recovered/Resolved]
  - Discomfort [Recovered/Resolved]
  - Feeling hot [Recovered/Resolved]
